FAERS Safety Report 6694287-2 (Version None)
Quarter: 2010Q2

REPORT INFORMATION
  Report Type: 
  Country: None (occurrence: None)
  Receive Date: 20100423
  Receipt Date: 20100412
  Transmission Date: 20101027
  Serious: Yes (Other)
  Sender: FDA-Public Use
  Company Number: US-ASTRAZENECA-2010SE01705

PATIENT
  Age: 16575 Day
  Sex: Male
  Weight: 136.1 kg

DRUGS (5)
  1. SEROQUEL [Suspect]
     Indication: DEPRESSION
     Route: 048
     Dates: start: 20010419
  2. SERZONE [Concomitant]
     Indication: DEPRESSION
     Dates: start: 20010419
  3. FUROSEMIDE [Concomitant]
     Dates: start: 20020313
  4. SYNTHROID [Concomitant]
     Dates: start: 20010101
  5. SYNTHROID [Concomitant]
     Dates: start: 20010101

REACTIONS (3)
  - DIABETES MELLITUS INADEQUATE CONTROL [None]
  - NEUROPATHY PERIPHERAL [None]
  - TYPE 2 DIABETES MELLITUS [None]
